FAERS Safety Report 7555088-6 (Version None)
Quarter: 2011Q2

REPORT INFORMATION
  Report Type: 
  Country: None (occurrence: None)
  Receive Date: 20110617
  Receipt Date: 20110610
  Transmission Date: 20111010
  Serious: No
  Sender: FDA-Public Use
  Company Number: US-PFIZER INC-2010127736

PATIENT
  Sex: Female
  Weight: 42.63 kg

DRUGS (7)
  1. CHANTIX [Suspect]
     Indication: SMOKING CESSATION THERAPY
     Dosage: 0.5 MG, 1X/DAY
     Route: 048
     Dates: start: 20100901, end: 20100101
  2. ADVAIR DISKUS 100/50 [Concomitant]
     Indication: CHRONIC OBSTRUCTIVE PULMONARY DISEASE
     Dosage: [FLUTICASONE PROPIONATE 500MCG]/[SALMETEROL XINAFOATE 50MCG], UNK
  3. CHANTIX [Suspect]
     Dosage: UNK
     Route: 048
     Dates: start: 20100101, end: 20101201
  4. IBUPROFEN (ADVIL) [Concomitant]
     Dosage: 500/50 MG, UNK
  5. LIPITOR [Suspect]
     Indication: BLOOD CHOLESTEROL INCREASED
     Dosage: 20 MG, 1X/DAY
     Route: 048
     Dates: start: 20110501
  6. LIPITOR [Suspect]
     Dosage: 40 MG, DAILY
  7. PROAIR HFA [Concomitant]
     Indication: CHRONIC OBSTRUCTIVE PULMONARY DISEASE
     Dosage: UNK

REACTIONS (10)
  - FEELING ABNORMAL [None]
  - BLOOD CHOLESTEROL INCREASED [None]
  - INSOMNIA [None]
  - STRESS [None]
  - WEIGHT DECREASED [None]
  - RESTLESSNESS [None]
  - ENERGY INCREASED [None]
  - DEPRESSED MOOD [None]
  - ABNORMAL DREAMS [None]
  - NERVOUSNESS [None]
